FAERS Safety Report 7412206-8 (Version None)
Quarter: 2011Q2

REPORT INFORMATION
  Report Type: 
  Country: None (occurrence: None)
  Receive Date: 20110405
  Receipt Date: 20101210
  Transmission Date: 20111010
  Serious: Yes (Hospitalization)
  Sender: FDA-Public Use
  Company Number: TPA2010A05443

PATIENT
  Age: 68 Year
  Sex: Female
  Weight: 84.369 kg

DRUGS (3)
  1. ULORIC [Suspect]
     Indication: GOUT
     Dosage: 40 MG, 1 IN 1 D, PER ORAL
     Route: 048
     Dates: start: 20101004, end: 20101011
  2. COLCHICINE [Suspect]
     Indication: GOUT
     Dosage: 0.6 MG, 1 IN 1 D, PER ORAL
     Route: 048
     Dates: start: 20101008, end: 20101012
  3. WARFARIN (WARFARIN) [Suspect]
     Indication: ATRIAL FIBRILLATION

REACTIONS (3)
  - DRUG INTERACTION [None]
  - INTERNATIONAL NORMALISED RATIO INCREASED [None]
  - OEDEMA PERIPHERAL [None]
